FAERS Safety Report 5769375-5 (Version None)
Quarter: 2008Q2

REPORT INFORMATION
  Report Type: 
  Country: None (occurrence: None)
  Receive Date: 20080612
  Receipt Date: 20080331
  Transmission Date: 20081010
  Serious: No
  Sender: FDA-Public Use
  Company Number: US-ABBOTT-08P-163-0444616-00

PATIENT
  Sex: Female
  Weight: 44.492 kg

DRUGS (3)
  1. HUMIRA [Suspect]
     Indication: ANKYLOSING SPONDYLITIS
     Route: 058
     Dates: start: 20071201
  2. YAZ [Concomitant]
     Indication: CONTRACEPTION
     Route: 048
  3. DOXYCYCLINE [Concomitant]
     Indication: ACNE

REACTIONS (1)
  - ACCIDENTAL EXPOSURE [None]
